FAERS Safety Report 8605335-4 (Version None)
Quarter: 2012Q3

REPORT INFORMATION
  Report Type: 
  Country: None (occurrence: None)
  Receive Date: 20120820
  Receipt Date: 20120815
  Transmission Date: 20120928
  Serious: Yes (Death)
  Sender: FDA-Public Use
  Company Number: JP-ABBOTT-12P-087-0966870-00

PATIENT
  Age: 80 Year
  Sex: Male

DRUGS (6)
  1. LVFX [Concomitant]
     Indication: MYCOBACTERIAL INFECTION
  2. CLARITHROMYCIN [Suspect]
     Indication: PRODUCT USED FOR UNKNOWN INDICATION
  3. CLARITHROMYCIN [Suspect]
  4. MINO [Concomitant]
     Indication: MYCOBACTERIAL INFECTION
  5. FRPM [Concomitant]
     Indication: MYCOBACTERIUM CHELONAE INFECTION
  6. LVFX [Concomitant]

REACTIONS (2)
  - HEPATIC FUNCTION ABNORMAL [None]
  - CONDITION AGGRAVATED [None]
